FAERS Safety Report 23484759 (Version 2)
Quarter: 2024Q1

REPORT INFORMATION
  Report Type: Spontaneous
  Country: US (occurrence: None)
  Receive Date: 20240206
  Receipt Date: 20240311
  Transmission Date: 20240410
  Serious: Yes (Hospitalization)
  Sender: FDA-Public Use
  Company Number: US-FARMAPROD-202401-0255

PATIENT
  Sex: Male

DRUGS (29)
  1. OXERVATE [Suspect]
     Active Substance: CENEGERMIN-BKBJ
     Indication: Neurotrophic keratopathy
     Route: 047
     Dates: start: 20231220
  2. ELIQUIS [Concomitant]
     Active Substance: APIXABAN
  3. TORSEMIDE [Concomitant]
     Active Substance: TORSEMIDE
  4. VOLTAREN ARTHRITIS PAIN [Concomitant]
     Active Substance: DICLOFENAC SODIUM
  5. LOVENOX [Concomitant]
     Active Substance: ENOXAPARIN SODIUM
  6. ATORVASTATIN CALCIUM [Concomitant]
     Active Substance: ATORVASTATIN CALCIUM
  7. FINASTERIDE [Concomitant]
     Active Substance: FINASTERIDE
  8. TRESIBA [Concomitant]
     Active Substance: INSULIN DEGLUDEC
  9. OZEMPIC [Concomitant]
     Active Substance: SEMAGLUTIDE
     Dosage: 2 MG / 0.75 ML PEN INJECTOR
  10. LORATADINE [Concomitant]
     Active Substance: LORATADINE
  11. METOLAZONE [Concomitant]
     Active Substance: METOLAZONE
  12. TAMSULOSIN HYDROCHLORIDE [Concomitant]
     Active Substance: TAMSULOSIN HYDROCHLORIDE
  13. KLOR-CON [Concomitant]
     Active Substance: POTASSIUM CHLORIDE
  14. FARXIGA [Concomitant]
     Active Substance: DAPAGLIFLOZIN PROPANEDIOL
  15. ALLOPURINOL [Concomitant]
     Active Substance: ALLOPURINOL
  16. SPIRONOLACTONE [Concomitant]
     Active Substance: SPIRONOLACTONE
  17. METOPROLOL SUCCINATE [Concomitant]
     Active Substance: METOPROLOL SUCCINATE
  18. GABAPENTIN [Concomitant]
     Active Substance: GABAPENTIN
  19. OXYCODONE HYDROCHLORIDE [Concomitant]
     Active Substance: OXYCODONE HYDROCHLORIDE
  20. DAKIN^S [Concomitant]
  21. METFORMIN GASTRIC [Concomitant]
     Dosage: EXTENDED RELEASE.
  22. OXYBUTYNIN CHLORIDE [Concomitant]
     Active Substance: OXYBUTYNIN CHLORIDE
  23. SERTRALINE HYDROCHLORIDE [Concomitant]
     Active Substance: SERTRALINE HYDROCHLORIDE
  24. METHOCARBAMOL [Concomitant]
     Active Substance: METHOCARBAMOL
  25. GABAPENTIN [Concomitant]
     Active Substance: GABAPENTIN
  26. COLLAGENASE SANTYL [Concomitant]
     Active Substance: COLLAGENASE CLOSTRIDIUM HISTOLYTICUM
  27. OMEPRAZOLE [Concomitant]
     Active Substance: OMEPRAZOLE
  28. SHINGRIX [Concomitant]
     Active Substance: RECOMBINANT VARICELLA ZOSTER VIRUS (VZV) GLYCOPROTEIN E
     Dosage: 50 MCG/0.5 KIT
  29. MICONAZOLE [Concomitant]
     Active Substance: MICONAZOLE

REACTIONS (2)
  - Hospitalisation [Recovered/Resolved]
  - Eye pain [Unknown]
